FAERS Safety Report 6187933-3 (Version None)
Quarter: 2009Q2

REPORT INFORMATION
  Report Type: 
  Country: None (occurrence: None)
  Receive Date: 20090511
  Receipt Date: 20090429
  Transmission Date: 20091009
  Serious: Yes (Other)
  Sender: FDA-Public Use
  Company Number: 2009AL002839

PATIENT
  Age: 47 Year
  Sex: Male

DRUGS (4)
  1. AMLODIPINE BESYLATE [Suspect]
     Indication: HYPERTENSION
     Dosage: 10 MG; PO
     Route: 048
  2. ACETYLSALICYLIC ACID [Concomitant]
  3. BISOPROLOL [Concomitant]
  4. LISINOPRIL [Concomitant]

REACTIONS (1)
  - INCREASED TENDENCY TO BRUISE [None]
